FAERS Safety Report 7804906-2 (Version None)
Quarter: 2011Q4

REPORT INFORMATION
  Report Type: 
  Country: None (occurrence: None)
  Receive Date: 20111010
  Receipt Date: 20110929
  Transmission Date: 20120403
  Serious: Yes (Other)
  Sender: FDA-Public Use
  Company Number: AR-BRISTOL-MYERS SQUIBB COMPANY-16118325

PATIENT
  Age: 27 Year
  Sex: Female

DRUGS (1)
  1. ORENCIA [Suspect]
     Indication: RHEUMATOID ARTHRITIS
     Dosage: INTERRUPTED BEFORE EVENT THERAPY STARTED 1YR AGO

REACTIONS (2)
  - ARTHRITIS [None]
  - GUTTATE PSORIASIS [None]
